FAERS Safety Report 24009704 (Version 1)
Quarter: 2024Q2

REPORT INFORMATION
  Report Type: Report from Study
  Country: JP (occurrence: JP)
  Receive Date: 20240625
  Receipt Date: 20240625
  Transmission Date: 20240716
  Serious: Yes (Other)
  Sender: FDA-Public Use
  Company Number: JP-RECORDATI-2024002885

PATIENT

DRUGS (26)
  1. ISTURISA [Suspect]
     Active Substance: OSILODROSTAT PHOSPHATE
     Indication: Cushing^s syndrome
     Dosage: 2 MG DAILY (BID)
     Route: 048
     Dates: start: 20230417, end: 20230509
  2. ISTURISA [Suspect]
     Active Substance: OSILODROSTAT PHOSPHATE
     Dosage: 4 MG DAILY, (BID)
     Route: 048
     Dates: start: 20230510, end: 20230531
  3. ISTURISA [Suspect]
     Active Substance: OSILODROSTAT PHOSPHATE
     Dosage: 6 MG DAILY, (BID)
     Route: 048
     Dates: start: 20230601, end: 20230813
  4. ISTURISA [Suspect]
     Active Substance: OSILODROSTAT PHOSPHATE
     Dosage: 8 MG DAILY, (BID)
     Route: 048
     Dates: start: 20230814, end: 20240225
  5. ISTURISA [Suspect]
     Active Substance: OSILODROSTAT PHOSPHATE
     Dosage: 6 MG DAILY, (BID)
     Route: 048
     Dates: start: 20240226
  6. OLMESARTAN [Concomitant]
     Active Substance: OLMESARTAN
     Indication: Disease complication
     Dosage: 20 MG DAILY
     Route: 048
  7. VONOPRAZAN FUMARATE [Concomitant]
     Active Substance: VONOPRAZAN FUMARATE
     Indication: Disease complication
     Dosage: 10 MG DAILY
     Route: 048
  8. NIFEDIPINE [Concomitant]
     Active Substance: NIFEDIPINE
     Indication: Disease complication
     Dosage: 20 MG DAILY
     Route: 048
     Dates: end: 20240128
  9. NIFEDIPINE [Concomitant]
     Active Substance: NIFEDIPINE
     Dosage: 10 MG DAILY
     Route: 048
     Dates: start: 20240129
  10. MAGNESIUM OXIDE [Concomitant]
     Active Substance: MAGNESIUM OXIDE
     Indication: Constipation
     Dosage: 750 MG DAILY (SELF ADJUSTING TO SYMPTOMS
     Route: 048
  11. CANAGLIFLOZIN\TENELIGLIPTIN [Concomitant]
     Active Substance: CANAGLIFLOZIN\TENELIGLIPTIN
     Indication: Disease complication
     Dosage: UNK
     Route: 048
     Dates: end: 20230813
  12. CANAGLIFLOZIN [Concomitant]
     Active Substance: CANAGLIFLOZIN
     Indication: Disease complication
     Dosage: 100 MG DAILY
     Route: 048
     Dates: start: 20230814
  13. DECADRON [Concomitant]
     Active Substance: DEXAMETHASONE
     Indication: Prophylaxis
     Dosage: 1 MG DAILY
     Route: 048
  14. METGLUCO [Concomitant]
     Active Substance: METFORMIN HYDROCHLORIDE
     Indication: Disease complication
     Dosage: 1000 MG DAILY
     Route: 048
  15. METYRAPONE [Concomitant]
     Active Substance: METYRAPONE
     Indication: Product used for unknown indication
     Dosage: 3000 MG DAILY, (CAPSULES 250MG)
     Dates: end: 20230514
  16. TEMOZOLOMIDE [Concomitant]
     Active Substance: TEMOZOLOMIDE
     Indication: Product used for unknown indication
     Dosage: 200 MG DAILY
     Dates: start: 20230602, end: 20230607
  17. TEMOZOLOMIDE [Concomitant]
     Active Substance: TEMOZOLOMIDE
     Dosage: 300 MG DAILY
     Dates: start: 20230626
  18. TEMODAL [Concomitant]
     Active Substance: TEMOZOLOMIDE
     Indication: Product used for unknown indication
     Dosage: 40 MG DAILY (CAPSULES 20 MG)
     Dates: start: 20230602, end: 20230607
  19. TEMODAL [Concomitant]
     Active Substance: TEMOZOLOMIDE
     Dosage: 20 MG DAILY (CAPSULES 20 MG)
     Dates: start: 20230626, end: 20230701
  20. RAMOSETRON HYDROCHLORIDE [Concomitant]
     Active Substance: RAMOSETRON HYDROCHLORIDE
     Indication: Product used for unknown indication
     Dosage: 0.1MG DAILY (OD TABLETS)
     Dates: start: 20230602, end: 20230607
  21. RAMOSETRON HYDROCHLORIDE [Concomitant]
     Active Substance: RAMOSETRON HYDROCHLORIDE
     Dosage: 0.1MG DAILY (OD TABLETS)
     Dates: start: 20230626, end: 20230701
  22. METOCLOPRAMIDE [Concomitant]
     Active Substance: METOCLOPRAMIDE
     Indication: Product used for unknown indication
     Dosage: 5 MG DAILY (TABLETS)
     Dates: start: 20230602, end: 20230607
  23. PAXLOVID [Concomitant]
     Active Substance: NIRMATRELVIR\RITONAVIR
     Indication: Coronavirus infection
     Dosage: 1SHEET DAILY
     Dates: start: 20231010, end: 20231015
  24. CALONAL [Concomitant]
     Active Substance: ACETAMINOPHEN
     Indication: Disease complication
     Dosage: 400 MG DAILY
     Dates: start: 20231010, end: 20231015
  25. SODIUM FERROUS CITRATE [Concomitant]
     Active Substance: SODIUM FERROUS CITRATE
     Indication: Iron deficiency anaemia
     Dosage: 50 MG DAILY
     Dates: start: 20231017, end: 20231128
  26. SODIUM FERROUS CITRATE [Concomitant]
     Active Substance: SODIUM FERROUS CITRATE
     Dosage: 50 MG DAILY
     Dates: start: 20240115, end: 20240226

REACTIONS (2)
  - Hypokalaemia [Recovered/Resolved]
  - Therapeutic product effect incomplete [Recovered/Resolved]

NARRATIVE: CASE EVENT DATE: 20230501
